FAERS Safety Report 7524632-7 (Version None)
Quarter: 2011Q2

REPORT INFORMATION
  Report Type: 
  Country: None (occurrence: None)
  Receive Date: 20110606
  Receipt Date: 20110525
  Transmission Date: 20111010
  Serious: Yes (Hospitalization, Other)
  Sender: FDA-Public Use
  Company Number: JP-JNJFOC-20110507363

PATIENT
  Age: 70 Year
  Sex: Female

DRUGS (1)
  1. GALANTAMINE HYDROBROMIDE [Suspect]
     Indication: DEMENTIA
     Route: 048
     Dates: start: 20110428, end: 20110429

REACTIONS (2)
  - PNEUMONIA ASPIRATION [None]
  - VOMITING [None]
